FAERS Safety Report 21094408 (Version 1)
Quarter: 2022Q3

REPORT INFORMATION
  Report Type: Spontaneous
  Country: US (occurrence: US)
  Receive Date: 20220718
  Receipt Date: 20220718
  Transmission Date: 20221026
  Serious: Yes (Hospitalization, Other)
  Sender: FDA-Public Use
  Company Number: US-PFIZER INC-PV202200022606

PATIENT
  Age: 74 Year
  Sex: Male

DRUGS (1)
  1. VYNDAMAX [Suspect]
     Active Substance: TAFAMIDIS
     Dosage: 61 MG

REACTIONS (13)
  - Generalised oedema [Unknown]
  - Oedema peripheral [Unknown]
  - Dyspnoea paroxysmal nocturnal [Unknown]
  - Orthopnoea [Unknown]
  - Abdominal distension [Unknown]
  - Fatigue [Unknown]
  - Pulmonary congestion [Unknown]
  - Hyperbilirubinaemia [Unknown]
  - Brain natriuretic peptide decreased [Unknown]
  - Chest X-ray abnormal [Unknown]
  - Diastolic dysfunction [Unknown]
  - Liver function test abnormal [Unknown]
  - Blister [Unknown]
